FAERS Safety Report 6909598-2 (Version None)
Quarter: 2010Q3

REPORT INFORMATION
  Report Type: 
  Country: None (occurrence: None)
  Receive Date: 20100805
  Receipt Date: 20100728
  Transmission Date: 20110219
  Serious: Yes (Death)
  Sender: FDA-Public Use
  Company Number: FI-ELI_LILLY_AND_COMPANY-FI201008000419

PATIENT
  Sex: Male

DRUGS (3)
  1. DROTRECOGIN ALFA (ACTIVATED) [Suspect]
     Indication: PANCREATITIS ACUTE
     Dosage: 24 UG/KG, EVERY HOUR
     Route: 042
  2. CEFUROXIME [Concomitant]
     Indication: INFECTION PROPHYLAXIS
  3. MEROPENEM [Concomitant]

REACTIONS (2)
  - BLOOD BILIRUBIN INCREASED [None]
  - MULTI-ORGAN FAILURE [None]
